FAERS Safety Report 15879616 (Version 1)
Quarter: 2019Q1

REPORT INFORMATION
  Report Type: Spontaneous
  Country: CH (occurrence: CH)
  Receive Date: 20190128
  Receipt Date: 20190128
  Transmission Date: 20190417
  Serious: Yes (Hospitalization, Other)
  Sender: FDA-Public Use
  Company Number: CH-TEVA-2019-CH-1004201

PATIENT
  Age: 54 Year
  Sex: Female

DRUGS (16)
  1. ALOPEXY [Concomitant]
     Route: 061
     Dates: end: 20181217
  2. DEURSIL [Concomitant]
     Active Substance: URSODIOL
     Route: 048
  3. NOVALGIN (METAMIZOLE SODIUM) [Suspect]
     Active Substance: METAMIZOLE SODIUM
     Indication: ANALGESIC THERAPY
     Dosage: AS NECESSARY
     Route: 065
     Dates: end: 20181217
  4. OXYNORM [Concomitant]
     Active Substance: OXYCODONE HYDROCHLORIDE
     Dosage: AS NECESSARY
     Route: 048
  5. MEPHADOLOR NEO [Suspect]
     Active Substance: MEFENAMIC ACID
     Dosage: AS NECESSARY
     Route: 048
     Dates: end: 20181217
  6. MIRTAZAPIN MEPHA [Suspect]
     Active Substance: MIRTAZAPINE
     Dosage: AS NECESSARY
     Route: 048
  7. PROLIA [Concomitant]
     Active Substance: DENOSUMAB
     Route: 058
  8. PANTOPRAZOL MEPHA [Concomitant]
     Active Substance: PANTOPRAZOLE SODIUM
     Route: 048
  9. VITARUBIN [Concomitant]
     Active Substance: CYANOCOBALAMIN
     Route: 030
  10. CREON [Concomitant]
     Active Substance: PANCRELIPASE AMYLASE\PANCRELIPASE LIPASE\PANCRELIPASE PROTEASE
     Route: 048
  11. VITAMIN D3 STREULI [Concomitant]
     Active Substance: CHOLECALCIFEROL
     Route: 048
  12. CALCIMAGON D3 [Concomitant]
     Active Substance: CALCIUM\CHOLECALCIFEROL
     Route: 048
  13. PERENTEROL [Concomitant]
     Active Substance: SACCHAROMYCES CEREVISIAE
     Route: 048
     Dates: end: 20181217
  14. FEMOSTON CONTI [Concomitant]
     Active Substance: DYDROGESTERONE\ESTRADIOL
     Route: 048
  15. BURGERSTEIN TOP VITAL [Concomitant]
     Route: 048
     Dates: end: 20181217
  16. ELTROXIN LF [Concomitant]
     Route: 048

REACTIONS (4)
  - Neutropenic colitis [Recovered/Resolved]
  - Pancytopenia [Recovered/Resolved]
  - Febrile neutropenia [Recovered/Resolved]
  - Agranulocytosis [Recovered/Resolved]

NARRATIVE: CASE EVENT DATE: 20181217
